FAERS Safety Report 25090260 (Version 1)
Quarter: 2025Q1

REPORT INFORMATION
  Report Type: Spontaneous
  Country: US (occurrence: US)
  Receive Date: 20250318
  Receipt Date: 20250318
  Transmission Date: 20250408
  Serious: Yes (Hospitalization, Other)
  Sender: SANOFI AVENTIS
  Company Number: US-SA-2025SA077831

PATIENT
  Age: 58 Year
  Sex: Female
  Weight: 77 kg

DRUGS (27)
  1. DUPIXENT [Suspect]
     Active Substance: DUPILUMAB
     Indication: Dermatitis atopic
     Dosage: 300 MG, QOW
     Route: 065
     Dates: start: 201810
  2. TRESIBA [Concomitant]
     Active Substance: INSULIN DEGLUDEC
  3. HUMALOG [Concomitant]
     Active Substance: INSULIN LISPRO
  4. KWIK [Concomitant]
  5. COLLAGEN [Concomitant]
     Active Substance: COLLAGEN
  6. MAGNESIUM [Concomitant]
     Active Substance: MAGNESIUM
  7. POTASSIUM CHLORIDE [Concomitant]
     Active Substance: POTASSIUM CHLORIDE
  8. .ALPHA.-TOCOPHEROL SUCCINATE, D- [Concomitant]
     Active Substance: .ALPHA.-TOCOPHEROL SUCCINATE, D-
  9. PERCOCET [Concomitant]
     Active Substance: ACETAMINOPHEN\OXYCODONE HYDROCHLORIDE
  10. CYCLOBENZAPRINE HYDROCHLORIDE [Concomitant]
     Active Substance: CYCLOBENZAPRINE HYDROCHLORIDE
  11. ZOLPIDEM TARTRATE [Concomitant]
     Active Substance: ZOLPIDEM TARTRATE
  12. FAMOTIDINE [Concomitant]
     Active Substance: FAMOTIDINE
  13. GABAPENTIN [Concomitant]
     Active Substance: GABAPENTIN
  14. PAXIL [Concomitant]
     Active Substance: PAROXETINE HYDROCHLORIDE
  15. ESTRADIOL [Concomitant]
     Active Substance: ESTRADIOL
  16. TOPROL XL [Concomitant]
     Active Substance: METOPROLOL SUCCINATE
  17. PROVERA [Concomitant]
     Active Substance: MEDROXYPROGESTERONE ACETATE
  18. LIPITOR [Concomitant]
     Active Substance: ATORVASTATIN CALCIUM
  19. METFORMIN HYDROCHLORIDE [Concomitant]
     Active Substance: METFORMIN HYDROCHLORIDE
  20. ABILIFY [Concomitant]
     Active Substance: ARIPIPRAZOLE
  21. ESOMEPRAZOLE MAGNESIUM [Concomitant]
     Active Substance: ESOMEPRAZOLE MAGNESIUM
  22. RYBELSUS [Concomitant]
     Active Substance: SEMAGLUTIDE
  23. LEVEMIR [Concomitant]
     Active Substance: INSULIN DETEMIR
  24. BIOTIN [Concomitant]
     Active Substance: BIOTIN
  25. FARXIGA [Concomitant]
     Active Substance: DAPAGLIFLOZIN PROPANEDIOL
  26. PROBIOTICS NOS [Concomitant]
     Active Substance: PROBIOTICS NOS
  27. CALCIUM\CHOLECALCIFEROL [Concomitant]
     Active Substance: CALCIUM\CHOLECALCIFEROL

REACTIONS (2)
  - Pneumonia [Unknown]
  - Respiratory syncytial virus infection [Unknown]

NARRATIVE: CASE EVENT DATE: 20250108
